FAERS Safety Report 20839442 (Version 1)
Quarter: 2022Q2

REPORT INFORMATION
  Report Type: Spontaneous
  Country: US (occurrence: None)
  Receive Date: 20220516
  Receipt Date: 20220516
  Transmission Date: 20220721
  Serious: Yes (Hospitalization)
  Sender: FDA-Public Use
  Company Number: None

PATIENT
  Age: 75 Year
  Sex: Female
  Weight: 80.29 kg

DRUGS (14)
  1. SUNITINIB [Suspect]
     Active Substance: SUNITINIB
     Indication: Malignant neoplasm of thymus
     Dosage: OTHER FREQUENCY : 3W, 1W OFF;?
     Route: 048
     Dates: start: 202110
  2. AMOXICILLIN-POT [Concomitant]
  3. CLAVULANATE [Concomitant]
  4. ATORVASTATIN [Concomitant]
  5. CALCIUM [Concomitant]
  6. CLONIDINE HCI [Concomitant]
  7. ELIQUIS [Concomitant]
  8. FLUTICASONE [Concomitant]
  9. PROPIONATE [Concomitant]
  10. LORATADINE [Concomitant]
  11. MERMANTINE HCI [Concomitant]
  12. NIFEDIPINE ER [Concomitant]
  13. PANTOPRAZOLE SODIUM [Concomitant]
  14. TRIAMTERENE-HCTZ [Concomitant]

REACTIONS (2)
  - Arthralgia [None]
  - Skin swelling [None]
